FAERS Safety Report 5820168-X (Version None)
Quarter: 2008Q3

REPORT INFORMATION
  Report Type: 
  Country: None (occurrence: None)
  Receive Date: 20080724
  Receipt Date: 20080715
  Transmission Date: 20090109
  Serious: Yes (Other)
  Sender: FDA-Public Use
  Company Number: PHHY2008DE14166

PATIENT
  Sex: Female

DRUGS (1)
  1. CLOZAPINE [Suspect]
     Dosage: UNK
     Route: 048
     Dates: end: 20080715

REACTIONS (3)
  - INFECTIOUS MONONUCLEOSIS [None]
  - LEUKOPENIA [None]
  - NEUTROPENIA [None]
